FAERS Safety Report 5549453-6 (Version None)
Quarter: 2007Q4

REPORT INFORMATION
  Report Type: 
  Country: None (occurrence: None)
  Receive Date: 20071212
  Receipt Date: 20070515
  Transmission Date: 20080405
  Serious: No
  Sender: FDA-Public Use
  Company Number: US-AMGEN-KDL222706

PATIENT
  Sex: Male

DRUGS (7)
  1. ENBREL [Suspect]
     Indication: RHEUMATOID ARTHRITIS
     Route: 058
     Dates: start: 20061017
  2. METHOTREXATE [Concomitant]
     Route: 048
     Dates: start: 20050101
  3. PREDNISONE [Concomitant]
     Dates: start: 20070201
  4. LIPITOR [Concomitant]
  5. PRILOSEC [Concomitant]
  6. MOTRIN [Concomitant]
  7. ZOLOFT [Concomitant]

REACTIONS (3)
  - EAR INFECTION [None]
  - PHARYNGOLARYNGEAL PAIN [None]
  - SINUSITIS [None]
